FAERS Safety Report 22350934 (Version 3)
Quarter: 2023Q4

REPORT INFORMATION
  Report Type: Spontaneous
  Country: US (occurrence: US)
  Receive Date: 20230522
  Receipt Date: 20231110
  Transmission Date: 20240110
  Serious: Yes (Other)
  Sender: FDA-Public Use
  Company Number: US-PFIZER INC-PV202300087668

PATIENT
  Age: 61 Year
  Sex: Female

DRUGS (1)
  1. XELJANZ XR [Suspect]
     Active Substance: TOFACITINIB CITRATE
     Dosage: UNK

REACTIONS (6)
  - Gastric operation [Unknown]
  - Gastric ulcer perforation [Unknown]
  - Hypoaesthesia [Unknown]
  - Thyroid disorder [Unknown]
  - Diarrhoea [Not Recovered/Not Resolved]
  - Sleep disorder [Unknown]
